FAERS Safety Report 10371809 (Version 1)
Quarter: 2014Q3

REPORT INFORMATION
  Report Type: Spontaneous
  Country: FR (occurrence: FR)
  Receive Date: 20140808
  Receipt Date: 20140808
  Transmission Date: 20150326
  Serious: Yes (Life-Threatening, Hospitalization, Disabling, Other)
  Sender: FDA-Public Use
  Company Number: FR-BRISTOL-MYERS SQUIBB COMPANY-21245857

PATIENT
  Age: 84 Year
  Sex: Male

DRUGS (5)
  1. COUMADIN [Suspect]
     Active Substance: WARFARIN SODIUM
     Dates: end: 20131210
  2. HYDREA [Suspect]
     Active Substance: HYDROXYUREA
     Dosage: CAPSULES
     Route: 048
     Dates: start: 19960101, end: 20131201
  3. TAZOCILLINE [Concomitant]
     Active Substance: PIPERACILLIN SODIUM\TAZOBACTAM SODIUM
  4. VANCOMYCIN [Suspect]
     Active Substance: VANCOMYCIN
     Route: 042
     Dates: start: 20131215, end: 20131223
  5. CALCIPARINE [Suspect]
     Active Substance: HEPARIN CALCIUM
     Dosage: 20000 IU/0.8 ML SOLN FOR INJ
     Route: 058
     Dates: start: 20131213, end: 20131227

REACTIONS (11)
  - Cellulitis [Unknown]
  - Atrial fibrillation [Unknown]
  - Dry gangrene [Recovered/Resolved with Sequelae]
  - Pneumonia klebsiella [Unknown]
  - Skin ulcer [Recovered/Resolved with Sequelae]
  - Embolism arterial [Recovered/Resolved with Sequelae]
  - Staphylococcal infection [Unknown]
  - Renal failure [Unknown]
  - Depression [Unknown]
  - Streptococcus test positive [Unknown]
  - Leg amputation [Recovered/Resolved with Sequelae]

NARRATIVE: CASE EVENT DATE: 20131101
